FAERS Safety Report 11058825 (Version 2)
Quarter: 2015Q2

REPORT INFORMATION
  Report Type: Report from Study
  Country: TW (occurrence: None)
  Receive Date: 20150421
  Receipt Date: 20150427
  Transmission Date: 20150821
  Serious: Yes (Hospitalization, Other)
  Sender: FDA-Public Use
  Company Number: TW2015033746

PATIENT
  Age: 80 Year
  Sex: Male

DRUGS (2)
  1. LAMIVUDINE (LAMIVUDINE) UNKNOWN [Suspect]
     Active Substance: LAMIVUDINE
     Indication: CHRONIC HEPATITIS B
  2. ADEFOVIR DIPIVOXIL. [Suspect]
     Active Substance: ADEFOVIR DIPIVOXIL
     Indication: CHRONIC HEPATITIS B

REACTIONS (4)
  - Blood bilirubin increased [None]
  - Blood albumin decreased [None]
  - Oesophageal varices haemorrhage [None]
  - Gastric varices [None]
